FAERS Safety Report 7592883-1 (Version None)
Quarter: 2011Q3

REPORT INFORMATION
  Report Type: 
  Country: None (occurrence: None)
  Receive Date: 20110706
  Receipt Date: 20110624
  Transmission Date: 20111222
  Serious: Yes (Life-Threatening, Hospitalization, Other)
  Sender: FDA-Public Use
  Company Number: JP-ROCHE-637802

PATIENT
  Age: 86 Year
  Sex: Male

DRUGS (3)
  1. ANTIBIOTIC NOS [Concomitant]
     Route: 065
  2. AVASTIN [Suspect]
     Route: 031
     Dates: start: 20090527, end: 20090527
  3. AVASTIN [Suspect]
     Indication: RETINAL VEIN OCCLUSION
     Route: 031
     Dates: start: 20090204, end: 20090204

REACTIONS (3)
  - ACUTE LUNG INJURY [None]
  - ACUTE RESPIRATORY FAILURE [None]
  - PULMONARY ALVEOLAR HAEMORRHAGE [None]
